FAERS Safety Report 9319523 (Version 1)
Quarter: 2013Q2

REPORT INFORMATION
  Report Type: Spontaneous
  Country: US (occurrence: US)
  Receive Date: 20130530
  Receipt Date: 20130530
  Transmission Date: 20140414
  Serious: Yes (Hospitalization)
  Sender: FDA-Public Use
  Company Number: US-GLAXOSMITHKLINE-A0994987A

PATIENT
  Age: 49 Year
  Sex: Male

DRUGS (1)
  1. FLOLAN [Suspect]
     Indication: PRODUCT USED FOR UNKNOWN INDICATION
     Dosage: 21NGKM CONTINUOUS
     Route: 065
     Dates: start: 20081125

REACTIONS (3)
  - Headache [Unknown]
  - Nausea [Unknown]
  - Rash macular [Unknown]
